FAERS Safety Report 19601382 (Version 1)
Quarter: 2021Q3

REPORT INFORMATION
  Report Type: Spontaneous
  Country: CZ (occurrence: CZ)
  Receive Date: 20210723
  Receipt Date: 20210723
  Transmission Date: 20211014
  Serious: Yes (Hospitalization, Other)
  Sender: FDA-Public Use
  Company Number: CZ-BRISTOL-MYERS SQUIBB COMPANY-BMS-2021-069039

PATIENT
  Age: 46 Year
  Sex: Female
  Weight: 70 kg

DRUGS (2)
  1. YERVOY [Suspect]
     Active Substance: IPILIMUMAB
     Indication: METASTATIC MALIGNANT MELANOMA
     Dosage: 3 MILLIGRAM/KILOGRAM, IT WAS ADMINISTERED FOUR INFUSIONS OF COMBINED THERAPY YERVOY + OPDIVO
     Route: 042
     Dates: start: 20200715, end: 20200930
  2. OPDIVO [Suspect]
     Active Substance: NIVOLUMAB
     Indication: METASTATIC MALIGNANT MELANOMA
     Dosage: 480 MILLIGRAM, IT WAS ADMINISTERED 4 INFUSION OF COMBINED THERAPY WITH YERVOY 3MG/KG + OPDIVO 1MG/KG
     Route: 042
     Dates: start: 20200715, end: 20210503

REACTIONS (4)
  - Facial paresis [Recovered/Resolved]
  - Hypothyroidism [Recovered/Resolved]
  - Erythema nodosum [Recovering/Resolving]
  - Hepatotoxicity [Recovered/Resolved]

NARRATIVE: CASE EVENT DATE: 20201020
